FAERS Safety Report 16811612 (Version 3)
Quarter: 2020Q4

REPORT INFORMATION
  Report Type: Spontaneous
  Country: US (occurrence: US)
  Receive Date: 20190916
  Receipt Date: 20201022
  Transmission Date: 20210113
  Serious: Yes (Other)
  Sender: FDA-Public Use
  Company Number: US-SA-2019SA257077

PATIENT

DRUGS (2)
  1. DUPIXENT [Suspect]
     Active Substance: DUPILUMAB
     Indication: DERMATITIS ATOPIC
     Dosage: 400 MG, QOW
     Dates: start: 20190910
  2. DUPIXENT [Suspect]
     Active Substance: DUPILUMAB
     Dosage: 200 MG, QOW
     Route: 058
     Dates: start: 201909

REACTIONS (9)
  - Pruritus [Unknown]
  - Vision blurred [Not Recovered/Not Resolved]
  - Skin haemorrhage [Unknown]
  - Skin exfoliation [Unknown]
  - Sleep disorder [Unknown]
  - Blindness [Not Recovered/Not Resolved]
  - Dry skin [Unknown]
  - Product use issue [Unknown]
  - Eczema [Unknown]
